FAERS Safety Report 15553004 (Version 1)
Quarter: 2018Q4

REPORT INFORMATION
  Report Type: Spontaneous
  Country: AU (occurrence: AU)
  Receive Date: 20181026
  Receipt Date: 20181026
  Transmission Date: 20190205
  Serious: Yes (Other)
  Sender: FDA-Public Use
  Company Number: AU-BAXTER-2018BAX026041

PATIENT

DRUGS (2)
  1. BAXTER 0.9% SODIUM CHLORIDE 900MG_100ML INJECTION BP BAG AHB1307_AHB13 [Suspect]
     Active Substance: SODIUM CHLORIDE
     Indication: MEDICATION DILUTION
     Route: 065
     Dates: start: 20181015
  2. FLUBICLOX [Suspect]
     Active Substance: FLUCLOXACILLIN
     Indication: PRODUCT USED FOR UNKNOWN INDICATION
     Route: 065
     Dates: start: 20181015

REACTIONS (3)
  - Device issue [Unknown]
  - Fluid overload [Unknown]
  - Respiratory distress [Unknown]

NARRATIVE: CASE EVENT DATE: 201810
